FAERS Safety Report 7835279-7 (Version None)
Quarter: 2011Q4

REPORT INFORMATION
  Report Type: 
  Country: None (occurrence: None)
  Receive Date: 20111024
  Receipt Date: 20111014
  Transmission Date: 20120403
  Serious: Yes (Hospitalization, Other)
  Sender: FDA-Public Use
  Company Number: FR-ASTRAZENECA-2011SE61425

PATIENT
  Age: 82 Year
  Sex: Female

DRUGS (1)
  1. IRESSA [Suspect]
     Indication: RESPIRATORY FAILURE
     Route: 048
     Dates: start: 20110401, end: 20111001

REACTIONS (2)
  - PEPTIC ULCER PERFORATION, OBSTRUCTIVE [None]
  - OFF LABEL USE [None]
